APPROVED DRUG PRODUCT: CETAMIDE
Active Ingredient: SULFACETAMIDE SODIUM
Strength: 10%
Dosage Form/Route: OINTMENT;OPHTHALMIC
Application: A080021 | Product #001
Applicant: ALCON LABORATORIES INC
Approved: Approved Prior to Jan 1, 1982 | RLD: No | RS: No | Type: DISCN